FAERS Safety Report 24335422 (Version 1)
Quarter: 2024Q3

REPORT INFORMATION
  Report Type: Spontaneous
  Country: IL (occurrence: IL)
  Receive Date: 20240919
  Receipt Date: 20240919
  Transmission Date: 20241017
  Serious: Yes (Other)
  Sender: GLAXOSMITHKLINE
  Company Number: IL-GLAXOSMITHKLINE-IL2024EME114473

PATIENT

DRUGS (1)
  1. NUCALA [Suspect]
     Active Substance: MEPOLIZUMAB
     Indication: Hypereosinophilic syndrome
     Dosage: UNK

REACTIONS (5)
  - Hypereosinophilic syndrome [Unknown]
  - Multi-organ disorder [Unknown]
  - Eosinophil count increased [Unknown]
  - Condition aggravated [Unknown]
  - Therapeutic product effect decreased [Unknown]
